FAERS Safety Report 12719824 (Version 1)
Quarter: 2016Q3

REPORT INFORMATION
  Report Type: Spontaneous
  Country: AT (occurrence: AT)
  Receive Date: 20160907
  Receipt Date: 20160907
  Transmission Date: 20161109
  Serious: Yes (Other)
  Sender: FDA-Public Use
  Company Number: AT-GLENMARK PHARMACEUTICALS INC, USA.-2016GMK024159

PATIENT
  Age: 27 Year
  Sex: Female

DRUGS (1)
  1. ROPINIROLE HYDROCHLORIDE. [Suspect]
     Active Substance: ROPINIROLE HYDROCHLORIDE
     Indication: PRODUCT USED FOR UNKNOWN INDICATION
     Dosage: UNK
     Route: 065

REACTIONS (3)
  - Gambling disorder [Recovered/Resolved]
  - Mood swings [Unknown]
  - Suicide attempt [Unknown]
